FAERS Safety Report 4970631-9 (Version None)
Quarter: 2006Q2

REPORT INFORMATION
  Report Type: 
  Country: None (occurrence: None)
  Receive Date: 20060412
  Receipt Date: 20050426
  Transmission Date: 20061013
  Serious: Yes (Hospitalization)
  Sender: FDA-Public Use
  Company Number: US-MERCK-0504USA04838

PATIENT
  Age: 65 Year
  Sex: Female
  Weight: 90 kg

DRUGS (1)
  1. VIOXX [Suspect]
     Indication: BACK PAIN
     Route: 048
     Dates: start: 20031206, end: 20031228

REACTIONS (6)
  - CEREBRAL HAEMORRHAGE [None]
  - DYSARTHRIA [None]
  - DYSPHAGIA [None]
  - HEMIPLEGIA [None]
  - INJURY [None]
  - VISION BLURRED [None]
